FAERS Safety Report 8404836-1 (Version None)
Quarter: 2012Q2

REPORT INFORMATION
  Report Type: 
  Country: None (occurrence: None)
  Receive Date: 20120601
  Receipt Date: 20120523
  Transmission Date: 20120825
  Serious: Yes (Other)
  Sender: FDA-Public Use
  Company Number: US-RB-040810-12

PATIENT
  Age: 27 Year
  Sex: Female

DRUGS (3)
  1. SUBOXONE [Suspect]
     Indication: PRODUCT USED FOR UNKNOWN INDICATION
     Dosage: UNKNOWN DOSING DETAILS
     Route: 065
  2. SUBOXONE [Suspect]
     Indication: PRODUCT USED FOR UNKNOWN INDICATION
     Dosage: UNKNOWN DOSING DETAILS
     Route: 065
  3. SUBOXONE [Suspect]
     Dosage: UNKNOWN DOSING DETAILS
     Route: 065

REACTIONS (10)
  - EMOTIONAL DISORDER [None]
  - SUICIDAL IDEATION [None]
  - MOOD ALTERED [None]
  - WEIGHT INCREASED [None]
  - OVARIAN CYST [None]
  - DEPRESSION [None]
  - FEELING OF BODY TEMPERATURE CHANGE [None]
  - OVARIAN ENLARGEMENT [None]
  - BLOOD CHOLESTEROL ABNORMAL [None]
  - WRONG TECHNIQUE IN DRUG USAGE PROCESS [None]
